FAERS Safety Report 9195928 (Version 5)
Quarter: 2013Q3

REPORT INFORMATION
  Report Type: Spontaneous
  Country: IE (occurrence: IE)
  Receive Date: 20130328
  Receipt Date: 20130705
  Transmission Date: 20140515
  Serious: Yes (Other)
  Sender: FDA-Public Use
  Company Number: IE-BAYER-2013-034929

PATIENT
  Age: 37 Year
  Sex: Female

DRUGS (4)
  1. YASMIN [Suspect]
     Indication: CONTRACEPTION
     Dosage: UNK UNK, QD
     Route: 048
     Dates: start: 201212, end: 201301
  2. SINGULAIR [Concomitant]
  3. VENTOLIN [Concomitant]
  4. SYMBICORT [Concomitant]

REACTIONS (4)
  - Fungal oesophagitis [Unknown]
  - Abdominal pain [Unknown]
  - Nausea [Unknown]
  - Gastrointestinal disorder [Unknown]
